FAERS Safety Report 5176325-1 (Version None)
Quarter: 2006Q4

REPORT INFORMATION
  Report Type: 
  Country: None (occurrence: None)
  Receive Date: 20061207
  Receipt Date: 20061121
  Transmission Date: 20070319
  Serious: Yes (Death, Hospitalization)
  Sender: FDA-Public Use
  Company Number: 2006002221

PATIENT
  Age: 52 Year
  Sex: Male

DRUGS (4)
  1. ERLOTINIB (TABLET) [Suspect]
     Indication: LARYNGEAL CANCER
     Dosage: 150 MG (QD); ORAL
     Route: 048
     Dates: start: 20060329
  2. CISPLATIN [Suspect]
     Indication: LARYNGEAL CANCER
     Dosage: 75 MG/M2; INTRAVENOUS
     Route: 042
     Dates: start: 20060329
  3. DOCETAXEL (DOCETAXEL) (INJECTION FOR INFUSION) [Suspect]
     Indication: LARYNGEAL CANCER
     Dosage: 75 MG/M2; INTRAVENOUS
     Route: 042
     Dates: start: 20060329
  4. PEMETREXED (PEMETREXED) [Suspect]
     Indication: DISEASE PROGRESSION
     Dates: start: 20061025

REACTIONS (17)
  - BLOOD SODIUM DECREASED [None]
  - DIARRHOEA [None]
  - FAECAL INCONTINENCE [None]
  - GENERAL PHYSICAL HEALTH DETERIORATION [None]
  - HAEMOGLOBIN DECREASED [None]
  - LOBAR PNEUMONIA [None]
  - LOSS OF CONSCIOUSNESS [None]
  - MALIGNANT NEOPLASM PROGRESSION [None]
  - METASTASES TO BONE [None]
  - MUSCULOSKELETAL PAIN [None]
  - PAIN [None]
  - PLATELET COUNT DECREASED [None]
  - POST PROCEDURAL COMPLICATION [None]
  - PURULENT DISCHARGE [None]
  - RESPIRATORY DISTRESS [None]
  - URINARY INCONTINENCE [None]
  - WHITE BLOOD CELL COUNT DECREASED [None]
